FAERS Safety Report 11652980 (Version 1)
Quarter: 2015Q4

REPORT INFORMATION
  Report Type: Report from Study
  Country: US (occurrence: US)
  Receive Date: 20151022
  Receipt Date: 20151022
  Transmission Date: 20160304
  Serious: Yes (Other)
  Sender: FDA-Public Use
  Company Number: US-GILEAD-2015-0177564

PATIENT
  Age: 68 Year
  Sex: Female

DRUGS (1)
  1. RANOLAZINE [Suspect]
     Active Substance: RANOLAZINE
     Indication: ANGINA PECTORIS
     Dosage: 1000 MG, UNK
     Route: 048

REACTIONS (7)
  - Intermittent claudication [Unknown]
  - Limb discomfort [Unknown]
  - Neuropathy peripheral [Unknown]
  - Mobility decreased [Unknown]
  - Fatigue [Unknown]
  - Pain in extremity [Unknown]
  - Chest discomfort [Unknown]
